FAERS Safety Report 5144978-X (Version None)
Quarter: 2006Q4

REPORT INFORMATION
  Report Type: 
  Country: None (occurrence: None)
  Receive Date: 20061107
  Receipt Date: 20061025
  Transmission Date: 20070319
  Serious: Yes (Hospitalization)
  Sender: FDA-Public Use
  Company Number: HQWYE656127OCT06

PATIENT
  Sex: Female
  Weight: 53 kg

DRUGS (5)
  1. ENBREL [Suspect]
     Indication: RHEUMATOID ARTHRITIS
     Route: 058
     Dates: start: 20050723
  2. LOXOPROFEN SODIUM [Concomitant]
     Dosage: UNSPECIFIED
     Route: 048
  3. FOLIAMIN [Concomitant]
     Dosage: UNSPECIFIED
     Route: 048
  4. METHOTREXATE [Concomitant]
     Dosage: UNSPECIFIED
     Route: 048
  5. SULFASALAZINE [Concomitant]
     Route: 048

REACTIONS (1)
  - PERITONITIS [None]
